FAERS Safety Report 8188915-2 (Version None)
Quarter: 2012Q1

REPORT INFORMATION
  Report Type: 
  Country: None (occurrence: None)
  Receive Date: 20120306
  Receipt Date: 20120228
  Transmission Date: 20120608
  Serious: Yes (Other)
  Sender: FDA-Public Use
  Company Number: JP-VERTEX PHARMACEUTICALS INC.-AE-2012-003085

PATIENT
  Age: 45 Year
  Sex: Male

DRUGS (12)
  1. REBETOL [Concomitant]
     Indication: HEPATITIS C
     Route: 048
     Dates: start: 20120110, end: 20120212
  2. FEROTYM [Concomitant]
     Route: 048
  3. PEGINTERFERON ALFA-2B [Concomitant]
     Route: 051
     Dates: start: 20120206
  4. REBETOL [Concomitant]
     Route: 048
     Dates: start: 20120206
  5. LIVALO [Concomitant]
     Route: 048
     Dates: end: 20120113
  6. EPADEL S [Concomitant]
  7. SINGULAIR [Concomitant]
     Route: 048
  8. ALENAPION [Concomitant]
     Route: 048
  9. TELAVIC (TELAPREVIR) [Suspect]
     Indication: HEPATITIS C
     Route: 048
     Dates: start: 20120110, end: 20120113
  10. PEGINTERFERON ALFA-2B [Concomitant]
     Indication: HEPATITIS C
     Route: 051
     Dates: start: 20120110, end: 20120130
  11. TELAVIC (TELAPREVIR) [Suspect]
     Route: 048
     Dates: start: 20120116
  12. CLARITIN [Concomitant]
     Route: 048

REACTIONS (4)
  - ANAEMIA [None]
  - RENAL DISORDER [None]
  - PLATELET COUNT DECREASED [None]
  - RASH [None]
